FAERS Safety Report 17169429 (Version 2)
Quarter: 2020Q1

REPORT INFORMATION
  Report Type: Report from Study
  Country: DE (occurrence: DE)
  Receive Date: 20191218
  Receipt Date: 20200210
  Transmission Date: 20200409
  Serious: Yes (Hospitalization)
  Sender: FDA-Public Use
  Company Number: NVSC2019DE068667

PATIENT
  Age: 78 Year
  Weight: 79.2 kg

DRUGS (20)
  1. ALLOPURINOL. [Concomitant]
     Active Substance: ALLOPURINOL
     Indication: HYPERURICAEMIA
     Dosage: UNK
     Route: 065
     Dates: start: 20140101
  2. MOMETASONE [Concomitant]
     Active Substance: MOMETASONE
     Indication: MIDDLE EAR EFFUSION
     Dosage: UNK
     Route: 065
     Dates: start: 20190907
  3. XYLOMETAZOLINE HYDROCHLORIDE [Concomitant]
     Active Substance: XYLOMETAZOLINE HYDROCHLORIDE
     Indication: MIDDLE EAR EFFUSION
     Dosage: UNK
     Route: 065
     Dates: start: 20190907
  4. PARACETAMOL [Concomitant]
     Active Substance: ACETAMINOPHEN
     Indication: CONTUSION
     Dosage: UNK
     Route: 065
     Dates: start: 20191015
  5. METAMIZOLE [Concomitant]
     Active Substance: METAMIZOLE
     Indication: CONTUSION
     Dosage: UNK
     Route: 065
     Dates: start: 20191015
  6. PANTOPRAZOLE [Concomitant]
     Active Substance: PANTOPRAZOLE
     Indication: PROPHYLAXIS
     Dosage: UNK
     Route: 065
     Dates: start: 20190526
  7. OLMESARTAN [Concomitant]
     Active Substance: OLMESARTAN
     Indication: HYPERTENSION
     Dosage: 40 MG, QD
     Route: 048
     Dates: start: 20160101
  8. MAGNESIUM [Concomitant]
     Active Substance: MAGNESIUM
     Indication: PROPHYLAXIS
     Dosage: UNK
     Route: 065
     Dates: start: 20180101
  9. PREDNISOLONE. [Suspect]
     Active Substance: PREDNISOLONE
     Indication: TEMPORAL ARTERITIS
     Dosage: 20 MG, QD
     Route: 048
     Dates: start: 20190717
  10. ASPIRINE [Concomitant]
     Active Substance: ASPIRIN
     Indication: TEMPORAL ARTERITIS
     Dosage: 100 MG, QD
     Route: 048
     Dates: start: 20190421
  11. ESCITALOPRAM [Concomitant]
     Active Substance: ESCITALOPRAM OXALATE
     Indication: ORGANIC BRAIN SYNDROME
     Dosage: UNK
     Route: 065
     Dates: start: 20191001
  12. PIRACETAM [Concomitant]
     Active Substance: PIRACETAM
     Indication: GENERAL PHYSICAL CONDITION
     Dosage: 1200 MG, QD
     Route: 048
     Dates: start: 20180101, end: 20191001
  13. MEMANTIN [Concomitant]
     Active Substance: MEMANTINE
     Indication: ORGANIC BRAIN SYNDROME
     Dosage: UNK
     Route: 065
     Dates: start: 20191001
  14. AMLODIPINE [Concomitant]
     Active Substance: AMLODIPINE BESYLATE
     Indication: HYPERTENSION
     Dosage: 5 MG, QD
     Route: 048
     Dates: start: 20160101
  15. HCT [Concomitant]
     Active Substance: HYDROCHLOROTHIAZIDE
     Indication: HYPERTENSION
     Dosage: 12.5 MG, QD
     Route: 048
     Dates: start: 20190701
  16. METFORMIN [Concomitant]
     Active Substance: METFORMIN HYDROCHLORIDE
     Indication: DIABETES MELLITUS
     Dosage: 500 MG, BID
     Route: 048
     Dates: start: 20190421
  17. OCTENISEPT [Concomitant]
     Active Substance: OCTENIDINE\PHENOXYETHANOL
     Indication: DECUBITUS ULCER
     Dosage: UNK
     Route: 065
     Dates: start: 20190717
  18. SECUKINUMAB. [Suspect]
     Active Substance: SECUKINUMAB
     Indication: TEMPORAL ARTERITIS
     Dosage: 300 MG
     Route: 058
     Dates: start: 20190717, end: 20190911
  19. SIMVASTATIN. [Concomitant]
     Active Substance: SIMVASTATIN
     Indication: HYPERLIPIDAEMIA
     Dosage: UNK
     Route: 065
     Dates: start: 20190717
  20. VITAMIN D [Concomitant]
     Active Substance: VITAMIN D NOS
     Indication: OSTEOPENIA
     Dosage: UNK
     Route: 065
     Dates: start: 20190421

REACTIONS (1)
  - Arthritis bacterial [Recovered/Resolved]

NARRATIVE: CASE EVENT DATE: 20191018
